FAERS Safety Report 8612146-2 (Version None)
Quarter: 2012Q3

REPORT INFORMATION
  Report Type: 
  Country: None (occurrence: None)
  Receive Date: 20120822
  Receipt Date: 20120816
  Transmission Date: 20120928
  Serious: Yes (Other)
  Sender: FDA-Public Use
  Company Number: US-GENZYME-MOZO-1000691

PATIENT
  Sex: Female
  Weight: 69.1 kg

DRUGS (32)
  1. ZYRTEC [Concomitant]
     Indication: PRODUCT USED FOR UNKNOWN INDICATION
     Dosage: 10 MG, QD
     Route: 048
  2. SENNA [Concomitant]
     Indication: PRODUCT USED FOR UNKNOWN INDICATION
     Dosage: UNK
     Route: 065
  3. MOZOBIL [Suspect]
     Indication: ACUTE MYELOID LEUKAEMIA
     Dosage: 750 MCG/KG, QD, DAYS 3-8
     Route: 042
     Dates: start: 20120330, end: 20120404
  4. ETOPOSIDE [Concomitant]
     Indication: ACUTE MYELOID LEUKAEMIA
     Dosage: 100 MG/M2, QD, DAYS 4-8
     Route: 042
     Dates: start: 20120331, end: 20120404
  5. CYTARABINE [Concomitant]
     Indication: ACUTE MYELOID LEUKAEMIA
     Dosage: 1000 MG/M2, QD, DAYS 4-8
     Route: 042
     Dates: start: 20120331, end: 20120404
  6. FIBERALL [Concomitant]
     Indication: PRODUCT USED FOR UNKNOWN INDICATION
     Dosage: 2 OTHER, QD
     Route: 048
  7. DEMEROL [Concomitant]
     Indication: CHILLS
     Dosage: 12.5 MG, PRN
     Route: 042
  8. VITAMIN B COMPLEX CAP [Concomitant]
     Indication: MEDICAL DIET
     Dosage: UNK
     Route: 048
  9. COMPAZINE [Concomitant]
     Indication: PRODUCT USED FOR UNKNOWN INDICATION
     Dosage: UNK
     Route: 065
  10. FIBER PILLS [Concomitant]
     Indication: PRODUCT USED FOR UNKNOWN INDICATION
     Route: 048
  11. MAGNESIUM [Concomitant]
     Indication: MEDICAL DIET
     Dosage: UNK
     Route: 065
  12. MITOXANTRONE [Concomitant]
     Indication: ACUTE MYELOID LEUKAEMIA
     Dosage: 8 MG/M2, QD, DAYS 4-8
     Route: 042
     Dates: start: 20120331, end: 20120404
  13. SODIUM CHLORIDE [Concomitant]
     Indication: PRODUCT USED FOR UNKNOWN INDICATION
     Dosage: 100 ML, Q1HR
     Route: 042
  14. DEXAMETHASONE [Concomitant]
     Indication: PRODUCT USED FOR UNKNOWN INDICATION
     Route: 047
  15. LEVOTHYROXINE SODIUM [Concomitant]
     Indication: PRODUCT USED FOR UNKNOWN INDICATION
     Dosage: 88 MCG, QD
     Route: 048
  16. FLONASE [Concomitant]
     Indication: PRODUCT USED FOR UNKNOWN INDICATION
     Dosage: 2 OTHER, QD
     Route: 045
  17. BENADRYL [Concomitant]
     Indication: INSOMNIA
     Dosage: UNK
     Route: 065
  18. ATIVAN [Concomitant]
     Indication: INSOMNIA
     Dosage: 1 MG, PRN
     Route: 048
  19. CELEXA [Concomitant]
     Indication: PRODUCT USED FOR UNKNOWN INDICATION
     Dosage: 20 MG, QD
     Route: 048
  20. ESTROGEN NOS [Concomitant]
     Indication: PRODUCT USED FOR UNKNOWN INDICATION
     Route: 065
  21. OXYCODONE HCL [Concomitant]
     Indication: PAIN
     Dosage: 10 MG, PRN
     Route: 048
  22. DEMEROL [Concomitant]
     Dosage: 25 MG, PRN
     Route: 042
  23. MULTI-VITAMIN [Concomitant]
     Indication: MEDICAL DIET
     Dosage: 1 OTHER, QD
     Route: 048
  24. COLACE [Concomitant]
     Indication: PRODUCT USED FOR UNKNOWN INDICATION
     Dosage: UNK
     Route: 065
  25. NEUPOGEN [Concomitant]
     Indication: ACUTE MYELOID LEUKAEMIA
     Dosage: UNK MCG/KG, QD, DAYS 1-8
     Route: 058
     Dates: start: 20120328, end: 20120404
  26. ALLOPURINOL [Concomitant]
     Indication: PRODUCT USED FOR UNKNOWN INDICATION
     Dosage: 300 MG, QD
     Route: 048
  27. ALBUTEROL [Concomitant]
     Indication: PRODUCT USED FOR UNKNOWN INDICATION
     Dosage: UNK
     Route: 065
  28. CHLORDIAZEPOXIDE W [Concomitant]
     Indication: PRODUCT USED FOR UNKNOWN INDICATION
     Dosage: 1 OTHER, BID
     Route: 048
  29. IMIPRAMINE HCL [Concomitant]
     Indication: PRODUCT USED FOR UNKNOWN INDICATION
     Dosage: 10 MG, UNK
     Route: 048
  30. VITAMIN E [Concomitant]
     Indication: MEDICAL DIET
     Dosage: UNK
     Route: 048
  31. VITAMIN D [Concomitant]
     Indication: MEDICAL DIET
     Dosage: 400 U, QD
     Route: 048
  32. ZOFRAN [Concomitant]
     Indication: PRODUCT USED FOR UNKNOWN INDICATION
     Dosage: 16 MG, QD, DAYS 4-8
     Route: 065

REACTIONS (15)
  - PNEUMONIA [None]
  - HYPOAESTHESIA [None]
  - PAIN [None]
  - ORTHOSTATIC HYPOTENSION [None]
  - DIZZINESS [None]
  - ABDOMINAL PAIN [None]
  - HEADACHE [None]
  - FATIGUE [None]
  - INSOMNIA [None]
  - PARAESTHESIA [None]
  - RASH PRURITIC [None]
  - NAUSEA [None]
  - VOMITING [None]
  - DECREASED APPETITE [None]
  - CONSTIPATION [None]
